FAERS Safety Report 24911708 (Version 1)
Quarter: 2025Q1

REPORT INFORMATION
  Report Type: Spontaneous
  Country: BG (occurrence: BG)
  Receive Date: 20250131
  Receipt Date: 20250131
  Transmission Date: 20250409
  Serious: Yes (Hospitalization, Other)
  Sender: RANBAXY
  Company Number: BG-SUN PHARMACEUTICAL INDUSTRIES LTD-2025R1-491193

PATIENT
  Age: 23 Year
  Sex: Male

DRUGS (1)
  1. VALPROIC ACID [Suspect]
     Active Substance: VALPROIC ACID
     Indication: Epilepsy
     Route: 065

REACTIONS (2)
  - Fracture [Recovering/Resolving]
  - Osteoporosis [Unknown]
